FAERS Safety Report 8580857-3 (Version None)
Quarter: 2012Q3

REPORT INFORMATION
  Report Type: 
  Country: None (occurrence: None)
  Receive Date: 20120726
  Receipt Date: 20120321
  Transmission Date: 20120928
  Serious: Yes (Hospitalization)
  Sender: FDA-Public Use
  Company Number: 2012HINREG0002

PATIENT
  Age: 65 Year
  Sex: Female

DRUGS (10)
  1. LEVETIRACETAM [Suspect]
     Indication: EPILEPSY
     Dosage: 1.25 MG, BID, ORAL
     Route: 048
     Dates: start: 20020131
  2. VALPROATE SODIUM [Suspect]
     Indication: EPILEPSY
     Dosage: 1 G, BID, ORAL
     Route: 048
  3. DOCUSATE SODIUM (DOCUSATE SODIUM) [Concomitant]
  4. ACETAMINOPHEN [Concomitant]
  5. CETIRIZINE (CETIRIZINE) [Concomitant]
  6. LACTULOSE [Concomitant]
  7. CLOBAZAM [Concomitant]
  8. IANSOPRAZOLE (IANSOPRAZOLE) [Concomitant]
  9. CARBOCYSTEINE (CARBOCYSTEINE) [Concomitant]
  10. CO-AMOXICLAV (CO-AMOXICLAV) [Concomitant]

REACTIONS (2)
  - NEUTROPENIA [None]
  - THROMBOCYTOPENIA [None]
